FAERS Safety Report 12539424 (Version 1)
Quarter: 2016Q3

REPORT INFORMATION
  Report Type: Spontaneous
  Country: US (occurrence: None)
  Receive Date: 20160707
  Receipt Date: 20160707
  Transmission Date: 20161109
  Serious: No
  Sender: FDA-Public Use
  Company Number: None

PATIENT
  Sex: Female

DRUGS (1)
  1. ATORVASTATIN TABLET, 40MG [Suspect]
     Active Substance: ATORVASTATIN
     Route: 048

REACTIONS (2)
  - Product odour abnormal [None]
  - Product taste abnormal [None]
